FAERS Safety Report 10091884 (Version 2)
Quarter: 2014Q2

REPORT INFORMATION
  Report Type: Spontaneous
  Country: US (occurrence: US)
  Receive Date: 20140421
  Receipt Date: 20140421
  Transmission Date: 20141212
  Serious: No
  Sender: FDA-Public Use
  Company Number: US-GILEAD-2012-0066542

PATIENT
  Sex: Female

DRUGS (9)
  1. LETAIRIS [Suspect]
     Indication: PRODUCT USED FOR UNKNOWN INDICATION
     Dosage: 5 MG, QD
     Route: 048
     Dates: start: 20121113, end: 20121129
  2. REMODULIN [Concomitant]
  3. LORTAB                             /00607101/ [Concomitant]
  4. GABAPENTIN [Concomitant]
  5. COUMADIN                           /00014802/ [Concomitant]
  6. ADVAIR [Concomitant]
  7. PANTOPRAZOLE [Concomitant]
  8. SPIRIVA [Concomitant]
  9. ADCIRCA [Concomitant]

REACTIONS (2)
  - Fluid retention [Recovered/Resolved]
  - Abdominal pain [Unknown]
